FAERS Safety Report 4453787-6 (Version None)
Quarter: 2004Q3

REPORT INFORMATION
  Report Type: 
  Country: None (occurrence: None)
  Receive Date: 20040920
  Receipt Date: 20040909
  Transmission Date: 20050211
  Serious: Yes (Hospitalization)
  Sender: FDA-Public Use
  Company Number: GB-BRISTOL-MYERS SQUIBB COMPANY-12697157

PATIENT
  Age: 73 Year
  Sex: Male

DRUGS (9)
  1. CARBOPLATIN [Suspect]
     Indication: NON-SMALL CELL LUNG CANCER
     Route: 042
     Dates: start: 20040727, end: 20040727
  2. GEMCITABINE HCL [Suspect]
     Indication: NON-SMALL CELL LUNG CANCER
     Route: 042
     Dates: start: 20040803, end: 20040803
  3. BLINDED: THALIDOMIDE [Suspect]
     Indication: NON-SMALL CELL LUNG CANCER
     Dates: start: 20040713, end: 20040824
  4. BLINDED: PLACEBO [Suspect]
     Indication: NON-SMALL CELL LUNG CANCER
     Dates: start: 20040713, end: 20040824
  5. CIPROFLOXACIN [Concomitant]
     Route: 048
     Dates: start: 20040803, end: 20040810
  6. DEXAMETHASONE [Concomitant]
     Route: 048
     Dates: start: 20040727, end: 20040730
  7. METOCLOPRAMIDE [Concomitant]
     Route: 048
     Dates: start: 20040727, end: 20040730
  8. CO-DANTHRAMER [Concomitant]
     Route: 048
  9. GRANISETRON [Concomitant]
     Route: 048
     Dates: start: 20040727, end: 20040727

REACTIONS (1)
  - LOSS OF CONSCIOUSNESS [None]
